FAERS Safety Report 6241508-6 (Version None)
Quarter: 2009Q2

REPORT INFORMATION
  Report Type: 
  Country: None (occurrence: None)
  Receive Date: 20090623
  Receipt Date: 20040316
  Transmission Date: 20091009
  Serious: Yes (Hospitalization)
  Sender: FDA-Public Use
  Company Number: ES-ROCHE-352189

PATIENT
  Sex: Female
  Weight: 56 kg

DRUGS (48)
  1. DACLIZUMAB [Suspect]
     Dosage: BASELINE VISIT
     Route: 042
     Dates: start: 20031024, end: 20031024
  2. DACLIZUMAB [Suspect]
     Dosage: WEEK 2 AND 4
     Route: 042
     Dates: start: 20031107
  3. DACLIZUMAB [Suspect]
     Dosage: DURING WEEK 6 VISIT
     Route: 042
     Dates: start: 20031205
  4. DACLIZUMAB [Suspect]
     Dosage: DURING WEEK 8 VISIT
     Route: 042
     Dates: start: 20031219
  5. MYCOPHENOLATE MOFETIL [Suspect]
     Dosage: DRUG: MICOPHENOLATO MOFETIL
     Route: 048
     Dates: start: 20031024
  6. MYCOPHENOLATE MOFETIL [Suspect]
     Route: 048
     Dates: start: 20031120
  7. MYCOPHENOLATE MOFETIL [Suspect]
     Route: 048
     Dates: start: 20031121
  8. MYCOPHENOLATE MOFETIL [Suspect]
     Route: 048
     Dates: start: 20031124
  9. MYCOPHENOLATE MOFETIL [Suspect]
     Route: 048
     Dates: start: 20031212
  10. MYCOPHENOLATE MOFETIL [Suspect]
     Route: 048
     Dates: start: 20040107
  11. MYCOPHENOLATE MOFETIL [Suspect]
     Route: 048
     Dates: start: 20040109
  12. MYCOPHENOLATE MOFETIL [Suspect]
     Route: 048
     Dates: start: 20040119
  13. MYCOPHENOLATE MOFETIL [Suspect]
     Route: 048
     Dates: start: 20040128
  14. MYCOPHENOLATE MOFETIL [Suspect]
     Route: 048
     Dates: start: 20041024
  15. MYCOPHENOLATE MOFETIL [Suspect]
     Route: 048
     Dates: start: 20050602
  16. MYCOPHENOLATE MOFETIL [Suspect]
     Route: 048
     Dates: start: 20050726
  17. MYCOPHENOLATE MOFETIL [Suspect]
     Route: 048
     Dates: start: 20060516
  18. MYCOPHENOLATE MOFETIL [Suspect]
     Dosage: DRUG: MICOPHENOLATO MOFETIL
     Route: 048
     Dates: start: 20031025
  19. MYCOPHENOLATE MOFETIL [Suspect]
     Route: 048
     Dates: start: 20031026, end: 20031119
  20. CYCLOSPORINE [Suspect]
     Dosage: DRUG: CICLOSPORINA
     Route: 048
     Dates: start: 20031024, end: 20031026
  21. CYCLOSPORINE [Suspect]
     Route: 048
     Dates: start: 20040217, end: 20040609
  22. CYCLOSPORINE [Suspect]
     Route: 048
     Dates: start: 20050726
  23. CYCLOSPORINE [Suspect]
     Dosage: DRUG: CICLOSPORINA
     Route: 048
     Dates: start: 20031027
  24. CYCLOSPORINE [Suspect]
     Route: 048
     Dates: start: 20031028, end: 20031122
  25. CYCLOSPORINE [Suspect]
     Route: 048
     Dates: start: 20031123, end: 20031130
  26. CYCLOSPORINE [Suspect]
     Route: 048
     Dates: start: 20031201, end: 20040216
  27. CYCLOSPORINE [Suspect]
     Route: 048
     Dates: start: 20040610
  28. CYCLOSPORINE [Suspect]
     Route: 048
     Dates: start: 20041104, end: 20050725
  29. PREDNISONA [Suspect]
     Route: 048
     Dates: start: 20031026
  30. METHYLPREDNISOLONE [Suspect]
     Dosage: DRUG: 6-METHIL PREDNISOLONA
     Route: 042
     Dates: start: 20031024, end: 20031026
  31. METHYLPREDNISOLONE [Suspect]
     Route: 042
     Dates: start: 20031031, end: 20031103
  32. SEPTRIN [Concomitant]
     Route: 048
     Dates: start: 20031026
  33. OMEPRAZOL [Concomitant]
     Route: 048
     Dates: start: 20031024
  34. FUROSEMIDA [Concomitant]
     Route: 042
     Dates: start: 20031024, end: 20031103
  35. GANCICLOVIR [Concomitant]
     Route: 048
     Dates: start: 20031027, end: 20031119
  36. SIMVASTATIN [Concomitant]
     Dosage: DRUG: SIMVASTATINA
     Route: 048
     Dates: start: 20031211
  37. ALPRAZOLAM [Concomitant]
     Dosage: DRUG REPORTED: ALPRAZOLAN
     Route: 048
     Dates: start: 20031028
  38. BISOPROLOL [Concomitant]
     Route: 048
     Dates: start: 20031222
  39. CANDESARTAN [Concomitant]
     Route: 048
     Dates: start: 20031206
  40. CIPROFLOXACINO [Concomitant]
     Route: 042
     Dates: start: 20031024, end: 20031025
  41. CIPROFLOXACINO [Concomitant]
     Route: 042
     Dates: start: 20031028, end: 20031103
  42. CIPROFLOXACINO [Concomitant]
     Route: 048
     Dates: start: 20031026, end: 20031027
  43. ENALAPRIL [Concomitant]
     Route: 048
     Dates: start: 20031219
  44. FUROSEMIDA [Concomitant]
     Route: 048
     Dates: start: 20031104
  45. IMIPENEM [Concomitant]
     Route: 042
     Dates: start: 20040107, end: 20040114
  46. NIFEDIPINO [Concomitant]
     Route: 048
     Dates: start: 20031118
  47. SULFAMETHOXAZOLE AND TRIMETHOPRIM [Concomitant]
     Route: 048
     Dates: start: 20031027, end: 20040123
  48. VALGANCICLOVIR HCL [Concomitant]
     Route: 048
     Dates: start: 20031119, end: 20040113

REACTIONS (4)
  - ANAEMIA [None]
  - CARDIAC FAILURE CONGESTIVE [None]
  - LEUKOPENIA [None]
  - UROSEPSIS [None]
